FAERS Safety Report 10595270 (Version 3)
Quarter: 2015Q1

REPORT INFORMATION
  Report Type: Spontaneous
  Country: US (occurrence: None)
  Receive Date: 20141118
  Receipt Date: 20150128
  Transmission Date: 20150720
  Serious: Yes (Disabling, Other)
  Sender: FDA-Public Use
  Company Number: 2014-20731

PATIENT
  Age: 84 Year
  Sex: Female

DRUGS (9)
  1. PRAVASTATIN [Concomitant]
     Active Substance: PRAVASTATIN\PRAVASTATIN SODIUM
  2. METOPROLOL [Concomitant]
     Active Substance: METOPROLOL
  3. OCUVITE (ASCORBIC ACID, RETINOL, TOCOPHEROL) [Concomitant]
  4. WARFARIN [Concomitant]
     Active Substance: WARFARIN
  5. CIPRO [Concomitant]
     Active Substance: CIPROFLOXACIN HYDROCHLORIDE
  6. HYDROCHLOROTHIAZIDE. [Concomitant]
     Active Substance: HYDROCHLOROTHIAZIDE
  7. REFRESH (CARMELLOSE) [Concomitant]
  8. EYLEA [Suspect]
     Active Substance: AFLIBERCEPT
     Indication: AGE-RELATED MACULAR DEGENERATION
     Dosage: 2 MG MILLIGRAM(S), EVERY 4 TO 6 WEEKS, INTRAOCULAR
     Route: 031
     Dates: start: 20141107, end: 20141107
  9. QUINAPRIL [Concomitant]
     Active Substance: QUINAPRIL\QUINAPRIL HYDROCHLORIDE

REACTIONS (5)
  - Blindness unilateral [None]
  - Retinal haemorrhage [None]
  - Visual acuity reduced [None]
  - Hypopyon [None]
  - Eye inflammation [None]

NARRATIVE: CASE EVENT DATE: 20141110
